FAERS Safety Report 7608563-X (Version None)
Quarter: 2011Q3

REPORT INFORMATION
  Report Type: 
  Country: None (occurrence: None)
  Receive Date: 20110714
  Receipt Date: 20110705
  Transmission Date: 20111222
  Serious: Yes (Hospitalization)
  Sender: FDA-Public Use
  Company Number: PHHY2011CA60576

PATIENT
  Sex: Male

DRUGS (2)
  1. LOPRESSOR [Suspect]
     Dosage: 50 MG, UNK
  2. LOPRESSOR [Suspect]
     Dosage: 150 MG, BID

REACTIONS (4)
  - ATRIAL FIBRILLATION [None]
  - HEART RATE INCREASED [None]
  - HYPOAESTHESIA [None]
  - SOMNOLENCE [None]
